FAERS Safety Report 9959341 (Version 1)
Quarter: 2014Q1

REPORT INFORMATION
  Report Type: Spontaneous
  Country: US (occurrence: None)
  Receive Date: 20140227
  Receipt Date: 20140227
  Transmission Date: 20141002
  Serious: Yes (Hospitalization)
  Sender: FDA-Public Use
  Company Number: UTC-044431

PATIENT
  Age: 42 Year
  Sex: Male
  Weight: 90.9 kg

DRUGS (4)
  1. REMODULIN [Suspect]
     Indication: PULMONARY ARTERIAL HYPERTENSION
     Dosage: 0.138 UG/KG 1 IN 1 MIN)
     Route: 041
     Dates: start: 20091001
  2. WARFARIN (UNKNOWN) [Concomitant]
  3. TRACLEER (BOSENTAN) [Concomitant]
  4. REVATIO (SILDENAFIL CITRATE) [Concomitant]

REACTIONS (3)
  - Fluid overload [None]
  - Right ventricular failure [None]
  - Condition aggravated [None]
